FAERS Safety Report 9445191 (Version 1)
Quarter: 2013Q3

REPORT INFORMATION
  Report Type: Spontaneous
  Country: US (occurrence: US)
  Receive Date: 20130807
  Receipt Date: 20130807
  Transmission Date: 20140515
  Serious: Yes (Other)
  Sender: FDA-Public Use
  Company Number: US-GLAXOSMITHKLINE-A1036522A

PATIENT
  Age: 39 Year
  Sex: Female
  Weight: 60.9 kg

DRUGS (12)
  1. TYKERB [Suspect]
     Indication: BREAST CANCER
     Dosage: 1000MG PER DAY
     Route: 048
  2. EXEMESTANE [Concomitant]
  3. AFINITOR [Concomitant]
  4. LUPRON DEPOT [Concomitant]
  5. MAGNESIA [Concomitant]
  6. ADVIL [Concomitant]
  7. VITAMIN D [Concomitant]
  8. CALCIUM [Concomitant]
  9. HERCEPTIN [Concomitant]
  10. TYLENOL [Concomitant]
  11. LYSINE [Concomitant]
  12. XGEVA [Concomitant]

REACTIONS (9)
  - Central nervous system lesion [Unknown]
  - Ear infection [Unknown]
  - Stomatitis [Unknown]
  - Weight decreased [Unknown]
  - Dizziness [Unknown]
  - Headache [Unknown]
  - Pain [Unknown]
  - Diarrhoea [Unknown]
  - Arthralgia [Unknown]
